FAERS Safety Report 5781489-2 (Version None)
Quarter: 2008Q2

REPORT INFORMATION
  Report Type: 
  Country: None (occurrence: None)
  Receive Date: 20080623
  Receipt Date: 20070730
  Transmission Date: 20081010
  Serious: No
  Sender: FDA-Public Use
  Company Number: US-BAYER-US-2007-028072

PATIENT
  Age: 47 Year
  Sex: Male

DRUGS (3)
  1. ULTRAVIST 300 [Suspect]
     Indication: COMPUTERISED TOMOGRAM
     Dosage: TOTAL DAILY DOSE: 100 ML
     Route: 042
     Dates: start: 20070704, end: 20070704
  2. READI-CAT [Concomitant]
     Indication: COMPUTERISED TOMOGRAM
     Dosage: UNIT DOSE: 900 ML
     Route: 048
     Dates: start: 20070703, end: 20070703
  3. PRILOSEC [Concomitant]

REACTIONS (3)
  - LIP SWELLING [None]
  - NASAL CONGESTION [None]
  - PRURITUS [None]
